FAERS Safety Report 9353292 (Version 1)
Quarter: 2013Q2

REPORT INFORMATION
  Report Type: Spontaneous
  Country: US (occurrence: None)
  Receive Date: 20130617
  Receipt Date: 20130617
  Transmission Date: 20140414
  Serious: Yes (Hospitalization)
  Sender: FDA-Public Use
  Company Number: None

PATIENT
  Age: 67 Year
  Sex: Male

DRUGS (2)
  1. ACETAMINOPHEN, ASPIRIN, CAFFEINE [Suspect]
     Indication: BACK PAIN
     Dosage: MG EVERY DAY PO
     Route: 048
  2. ASPIRIN [Suspect]
     Indication: ATRIAL FIBRILLATION
     Dosage: 81 MG EVERY DAY PO
     Route: 048
     Dates: start: 20111122, end: 20130222

REACTIONS (2)
  - Gastrointestinal haemorrhage [None]
  - Gastric ulcer [None]
